FAERS Safety Report 20887970 (Version 1)
Quarter: 2022Q2

REPORT INFORMATION
  Report Type: Spontaneous
  Country: US (occurrence: US)
  Receive Date: 20220529
  Receipt Date: 20220529
  Transmission Date: 20220721
  Serious: Yes (Other)
  Sender: FDA-Public Use
  Company Number: US-CELGENE-USA-20220104822

PATIENT
  Age: 71 Year
  Sex: Female
  Weight: 88.0 kg

DRUGS (2)
  1. POMALYST [Suspect]
     Active Substance: POMALIDOMIDE
     Indication: Plasma cell myeloma
     Route: 048
     Dates: start: 202110
  2. POMALYST [Suspect]
     Active Substance: POMALIDOMIDE
     Dosage: DAILY FOR 3 WEEKS ON 1 WEEK OFF
     Route: 048
     Dates: start: 202111, end: 20220516

REACTIONS (3)
  - Malignant neoplasm progression [Unknown]
  - Full blood count decreased [Unknown]
  - Drug ineffective [Unknown]
